FAERS Safety Report 4735452-0 (Version None)
Quarter: 2005Q3

REPORT INFORMATION
  Report Type: 
  Country: None (occurrence: None)
  Receive Date: 20050801
  Receipt Date: 20050801
  Transmission Date: 20060218
  Serious: No
  Sender: FDA-Public Use
  Company Number: None

PATIENT
  Age: 41 Year
  Sex: Male
  Weight: 79 kg

DRUGS (7)
  1. CEFEPIME [Suspect]
     Indication: PYREXIA
     Dosage: 2 GRAMS IV Q 12
     Route: 042
     Dates: start: 20050312, end: 20050314
  2. PAXIL [Concomitant]
  3. M.V.I. [Concomitant]
  4. FAMCICLOVIR [Concomitant]
  5. DAPSONE [Concomitant]
  6. ONDANSETRON [Concomitant]
  7. BACLOFEN [Concomitant]

REACTIONS (8)
  - ABDOMINAL PAIN [None]
  - CHILLS [None]
  - DIARRHOEA [None]
  - NAUSEA [None]
  - PYREXIA [None]
  - RASH PAPULAR [None]
  - RASH PRURITIC [None]
  - VOMITING [None]
